FAERS Safety Report 16276742 (Version 1)
Quarter: 2019Q2

REPORT INFORMATION
  Report Type: Report from Study
  Country: ES (occurrence: ES)
  Receive Date: 20190506
  Receipt Date: 20190506
  Transmission Date: 20190711
  Serious: Yes (Hospitalization)
  Sender: FDA-Public Use
  Company Number: ES-JNJFOC-20190440541

PATIENT
  Age: 46 Year
  Sex: Female

DRUGS (1)
  1. XEPLION [Suspect]
     Active Substance: PALIPERIDONE PALMITATE
     Indication: SCHIZOPHRENIA
     Route: 030

REACTIONS (3)
  - Delirium [Recovering/Resolving]
  - Treatment noncompliance [Unknown]
  - Behaviour disorder [Recovering/Resolving]

NARRATIVE: CASE EVENT DATE: 2019
